FAERS Safety Report 5738775-1 (Version None)
Quarter: 2008Q2

REPORT INFORMATION
  Report Type: 
  Country: None (occurrence: None)
  Receive Date: 20080515
  Receipt Date: 20080222
  Transmission Date: 20081010
  Serious: No
  Sender: FDA-Public Use
  Company Number: A0711347A

PATIENT
  Age: 48 Year
  Sex: Female

DRUGS (4)
  1. VERAMYST [Suspect]
     Dosage: 2SPR TWICE PER DAY
     Route: 045
     Dates: start: 20080102, end: 20080131
  2. PREVACID [Concomitant]
  3. TRAMADOL HCL [Concomitant]
  4. VALIUM [Concomitant]

REACTIONS (1)
  - EPISTAXIS [None]
